FAERS Safety Report 8200238-1 (Version None)
Quarter: 2012Q1

REPORT INFORMATION
  Report Type: 
  Country: None (occurrence: None)
  Receive Date: 20120312
  Receipt Date: 20120309
  Transmission Date: 20120608
  Serious: Yes (Other)
  Sender: FDA-Public Use
  Company Number: US-PFIZER INC-2012063573

PATIENT
  Sex: Female
  Weight: 63.039 kg

DRUGS (2)
  1. CHANTIX [Suspect]
     Indication: SMOKING CESSATION THERAPY
     Dosage: 0.5 MG, 1X/DAY
     Route: 048
  2. MORPHINE [Concomitant]
     Dosage: UNK

REACTIONS (6)
  - LIMB DISCOMFORT [None]
  - ABNORMAL DREAMS [None]
  - PERIPHERAL CIRCULATORY FAILURE [None]
  - GAIT DISTURBANCE [None]
  - BLUE TOE SYNDROME [None]
  - ARTERIAL OCCLUSIVE DISEASE [None]
